FAERS Safety Report 9539373 (Version 2)
Quarter: 2013Q3

REPORT INFORMATION
  Report Type: Report from Study
  Country: DE (occurrence: DE)
  Receive Date: 20130920
  Receipt Date: 20130920
  Transmission Date: 20140515
  Serious: Yes (Other)
  Sender: FDA-Public Use
  Company Number: DE-ABBVIE-13P-062-1138049-00

PATIENT
  Age: 22 Year
  Sex: Female
  Weight: 50 kg

DRUGS (4)
  1. HUMIRA [Suspect]
     Indication: COLITIS ULCERATIVE
     Route: 058
     Dates: start: 20130816, end: 20130816
  2. PREDNISOLONE [Concomitant]
     Indication: COLITIS ULCERATIVE
     Route: 048
     Dates: start: 20130816
  3. PENTASA [Concomitant]
     Indication: COLITIS ULCERATIVE
     Route: 048
     Dates: start: 20130816
  4. IDEOS [Concomitant]
     Indication: COLITIS ULCERATIVE
     Route: 048
     Dates: start: 20130816

REACTIONS (5)
  - Sensation of heaviness [Recovered/Resolved]
  - Paraesthesia [Recovered/Resolved]
  - Hypoaesthesia [Recovered/Resolved]
  - Pyrexia [Recovered/Resolved]
  - Asthenia [Recovered/Resolved]
